FAERS Safety Report 8620800-1 (Version None)
Quarter: 2012Q3

REPORT INFORMATION
  Report Type: 
  Country: None (occurrence: None)
  Receive Date: 20120824
  Receipt Date: 20120810
  Transmission Date: 20120928
  Serious: Yes (Other)
  Sender: FDA-Public Use
  Company Number: JP-VERTEX PHARMACEUTICAL INC.-AE-2012-010957

PATIENT
  Age: 52 Year
  Sex: Male

DRUGS (9)
  1. PEGINTRON                          /01543001/ [Concomitant]
     Indication: HEPATITIS C
     Dosage: 1.5 A?G/KG, UNK
     Route: 058
     Dates: start: 20120709, end: 20120709
  2. PEGINTRON                          /01543001/ [Concomitant]
     Dosage: 1.0 A?G/KG, UNK
     Route: 058
     Dates: start: 20120730
  3. VX-950 [Suspect]
     Dosage: 1500 MG, QD
     Route: 048
     Dates: start: 20120713
  4. PEGINTRON                          /01543001/ [Concomitant]
     Dosage: 0.8 A?G/KG, UNK
     Route: 058
     Dates: start: 20120716, end: 20120723
  5. ZANTAC [Concomitant]
     Dosage: 300 MG, QD
     Route: 048
  6. MYSER OINTMENT [Concomitant]
     Dosage: UNK, QD
     Route: 061
  7. VX-950 [Suspect]
     Indication: HEPATITIS C
     Dosage: 2250 MG, QD
     Route: 048
     Dates: start: 20120709, end: 20120712
  8. REBETOL [Concomitant]
     Indication: HEPATITIS C
     Dosage: 800 MG, QD
     Route: 048
     Dates: start: 20120709
  9. ALLEGRA [Concomitant]
     Dosage: 120 MG, QD
     Route: 048

REACTIONS (2)
  - NEUTROPHIL COUNT DECREASED [None]
  - RENAL IMPAIRMENT [None]
